FAERS Safety Report 10257928 (Version 1)
Quarter: 2014Q2

REPORT INFORMATION
  Report Type: Spontaneous
  Country: US (occurrence: None)
  Receive Date: 20140623
  Receipt Date: 20140623
  Transmission Date: 20141212
  Serious: No
  Sender: FDA-Public Use
  Company Number: None

PATIENT
  Age: 24 Year
  Sex: Female
  Weight: 108.86 kg

DRUGS (1)
  1. NEXT CHOICE [Suspect]
     Indication: CONTRACEPTION
     Dosage: 1 PILL ONE TIME TAKEN BY MOUTH
     Route: 048
     Dates: start: 20140619, end: 20140619

REACTIONS (1)
  - Urticaria [None]
